FAERS Safety Report 17083976 (Version 1)
Quarter: 2019Q4

REPORT INFORMATION
  Report Type: Spontaneous
  Country: CZ (occurrence: CZ)
  Receive Date: 20191127
  Receipt Date: 20191127
  Transmission Date: 20200122
  Serious: Yes (Life-Threatening)
  Sender: FDA-Public Use
  Company Number: NVSC2019CZ048491

PATIENT
  Age: 5 Year
  Sex: Female
  Weight: 21 kg

DRUGS (1)
  1. MONTELUKAST [Suspect]
     Active Substance: MONTELUKAST SODIUM
     Indication: PRODUCT USED FOR UNKNOWN INDICATION
     Dosage: 3 OT, QD
     Route: 048
     Dates: start: 20140615, end: 20140617

REACTIONS (5)
  - Tremor [Recovered/Resolved]
  - Hallucination [Recovered/Resolved with Sequelae]
  - Movement disorder [Recovered/Resolved]
  - Depression [Recovered/Resolved with Sequelae]
  - Sleep terror [Recovered/Resolved with Sequelae]

NARRATIVE: CASE EVENT DATE: 20140615
